FAERS Safety Report 6647380-4 (Version None)
Quarter: 2010Q1

REPORT INFORMATION
  Report Type: 
  Country: None (occurrence: None)
  Receive Date: 20100323
  Receipt Date: 20100316
  Transmission Date: 20100710
  Serious: Yes (Other)
  Sender: FDA-Public Use
  Company Number: US-BAYER-201016835NA

PATIENT
  Age: 34 Year
  Sex: Male
  Weight: 104 kg

DRUGS (2)
  1. ULTRAVIST 370 [Suspect]
     Indication: COMPUTERISED TOMOGRAM ABDOMEN
     Dosage: TOTAL DAILY DOSE: 100 ML  UNIT DOSE: 500 ML
     Route: 042
     Dates: start: 20100315, end: 20100315
  2. ULTRAVIST 370 [Suspect]
     Dosage: ULTRAVIST GIVEN AS ORAL CONTRAST
     Route: 048
     Dates: start: 20100315, end: 20100315

REACTIONS (4)
  - BURNING SENSATION [None]
  - ERYTHEMA [None]
  - OEDEMA PERIPHERAL [None]
  - PRURITUS [None]
